FAERS Safety Report 22982486 (Version 2)
Quarter: 2023Q4

REPORT INFORMATION
  Report Type: Spontaneous
  Country: US (occurrence: US)
  Receive Date: 20230926
  Receipt Date: 20231116
  Transmission Date: 20240110
  Serious: No
  Sender: FDA-Public Use
  Company Number: US-CURIUM-2023000647

PATIENT
  Age: 66 Year
  Sex: Male

DRUGS (2)
  1. ULTRA-TECHNEKOW V4 [Suspect]
     Active Substance: TECHNETIUM TC-99M SODIUM PERTECHNETATE
     Indication: Radioisotope scan
     Dates: start: 20230621, end: 20230621
  2. SODIUM PYROPHOSPHATE [Concomitant]
     Active Substance: SODIUM PYROPHOSPHATE
     Indication: Radioisotope scan
     Dates: start: 20230621, end: 20230621

REACTIONS (1)
  - Radioisotope scan abnormal [Unknown]

NARRATIVE: CASE EVENT DATE: 20230621
